FAERS Safety Report 18090441 (Version 3)
Quarter: 2020Q4

REPORT INFORMATION
  Report Type: Spontaneous
  Country: US (occurrence: US)
  Receive Date: 20200730
  Receipt Date: 20201204
  Transmission Date: 20210113
  Serious: Yes (Other)
  Sender: FDA-Public Use
  Company Number: US-009507513-2007USA008941

PATIENT
  Age: 80 Year
  Sex: Female
  Weight: 56.24 kg

DRUGS (19)
  1. CLOZAPINE. [Concomitant]
     Active Substance: CLOZAPINE
     Indication: HALLUCINATION
     Dosage: 12.5 MILLIGRAM
     Dates: start: 2020
  2. AMANTADINE. [Suspect]
     Active Substance: AMANTADINE HYDROCHLORIDE
     Dosage: 274 MILLIGRAM, ORALLY
     Route: 048
     Dates: start: 201905, end: 201905
  3. ESTRADIOL. [Concomitant]
     Active Substance: ESTRADIOL
  4. PRAMIPEXOLE. [Concomitant]
     Active Substance: PRAMIPEXOLE
     Dosage: UNK
  5. AMANTADINE. [Suspect]
     Active Substance: AMANTADINE HYDROCHLORIDE
     Indication: DYSKINESIA
     Dosage: 137 MG, ORALLY
     Route: 048
     Dates: start: 20190501, end: 201905
  6. AMANTADINE. [Suspect]
     Active Substance: AMANTADINE HYDROCHLORIDE
     Dosage: 137 MILLIGRAM, ORALLY
     Route: 048
     Dates: start: 201905, end: 2019
  7. SINEMET [Suspect]
     Active Substance: CARBIDOPA\LEVODOPA
     Indication: PARKINSON^S DISEASE
     Dosage: UNK
     Route: 048
  8. AMANTADINE. [Suspect]
     Active Substance: AMANTADINE HYDROCHLORIDE
     Dosage: 137 MILLIGRAM, ORALLY
     Route: 048
  9. TEMAZEPAM. [Concomitant]
     Active Substance: TEMAZEPAM
  10. NUPLAZID [Concomitant]
     Active Substance: PIMAVANSERIN TARTRATE
     Indication: PARKINSON^S DISEASE PSYCHOSIS
  11. AMANTADINE. [Suspect]
     Active Substance: AMANTADINE HYDROCHLORIDE
     Dosage: 137 MILLIGRAM, ORALLY
     Route: 048
  12. AMANTADINE. [Suspect]
     Active Substance: AMANTADINE HYDROCHLORIDE
     Dosage: 137 MILLIGRAM, ORALLY AT BED TIME
     Route: 048
  13. CLOZAPINE. [Concomitant]
     Active Substance: CLOZAPINE
     Dosage: 6 PILLS
     Dates: start: 2020
  14. NUPLAZID [Concomitant]
     Active Substance: PIMAVANSERIN TARTRATE
     Indication: HALLUCINATION
     Dosage: UNK
  15. ATROPINE. [Concomitant]
     Active Substance: ATROPINE
     Dosage: UNK
  16. RIVASTIGMINE. [Concomitant]
     Active Substance: RIVASTIGMINE
     Dosage: UNK
  17. AMANTADINE. [Suspect]
     Active Substance: AMANTADINE HYDROCHLORIDE
     Dosage: 137 MILLIGRAM, ORALLY AT BED TIME
     Route: 048
  18. PROGESTERONE. [Concomitant]
     Active Substance: PROGESTERONE
  19. VITAMINS (UNSPECIFIED) [Concomitant]
     Active Substance: VITAMINS

REACTIONS (15)
  - Somnolence [Unknown]
  - Parkinson^s disease psychosis [Unknown]
  - Abdominal distension [Not Recovered/Not Resolved]
  - Fall [Recovered/Resolved]
  - Skin discolouration [Unknown]
  - Swelling face [Unknown]
  - Fluid retention [Unknown]
  - Wrist surgery [Recovered/Resolved]
  - Peripheral swelling [Recovered/Resolved]
  - Obsessive-compulsive disorder [Unknown]
  - Weight increased [Recovering/Resolving]
  - Fungal infection [Not Recovered/Not Resolved]
  - Peripheral swelling [Not Recovered/Not Resolved]
  - Wrist fracture [Recovered/Resolved]
  - Cognitive disorder [Not Recovered/Not Resolved]

NARRATIVE: CASE EVENT DATE: 2019
